FAERS Safety Report 10901274 (Version 2)
Quarter: 2015Q2

REPORT INFORMATION
  Report Type: Spontaneous
  Country: DE (occurrence: DE)
  Receive Date: 20150310
  Receipt Date: 20150429
  Transmission Date: 20150821
  Serious: Yes (Other)
  Sender: FDA-Public Use
  Company Number: DE-DRREDDYS-GER/GER/15/0046399

PATIENT
  Age: 22 Year
  Sex: Female

DRUGS (2)
  1. SUMATRIPTAN BETA 100 MG FILMTABLETTEN [Suspect]
     Active Substance: SUMATRIPTAN
     Indication: PRODUCT USED FOR UNKNOWN INDICATION
     Dosage: APPROXIMATELY HALF TO ONE TABLET DAILY
     Route: 048
     Dates: start: 20140701, end: 20141231
  2. TRAMADOLOR 100 ID RETARDTABLETTEN [Suspect]
     Active Substance: TRAMADOL HYDROCHLORIDE
     Indication: PRODUCT USED FOR UNKNOWN INDICATION
     Route: 048
     Dates: start: 20140701, end: 20141231

REACTIONS (1)
  - Intentional product misuse [Unknown]

NARRATIVE: CASE EVENT DATE: 20141001
